FAERS Safety Report 5402978-6 (Version None)
Quarter: 2007Q3

REPORT INFORMATION
  Report Type: 
  Country: None (occurrence: None)
  Receive Date: 20070718
  Receipt Date: 20060802
  Transmission Date: 20080115
  Serious: Yes (Other)
  Sender: FDA-Public Use
  Company Number: 2006101982

PATIENT
  Sex: Male

DRUGS (2)
  1. DEPO-MEDROL [Suspect]
     Indication: BACK PAIN
     Dosage: PARENTERAL
     Route: 051
  2. DEPO-MEDROL [Suspect]
     Indication: CHEST PAIN
     Dosage: PARENTERAL
     Route: 051

REACTIONS (1)
  - OSTEONECROSIS [None]
